FAERS Safety Report 24791551 (Version 1)
Quarter: 2024Q4

REPORT INFORMATION
  Report Type: Spontaneous
  Country: US (occurrence: US)
  Receive Date: 20241231
  Receipt Date: 20241231
  Transmission Date: 20250115
  Serious: Yes (Other)
  Sender: JOHNSON AND JOHNSON
  Company Number: US-JNJFOC-20241158383

PATIENT
  Sex: Male

DRUGS (2)
  1. ERLEADA [Suspect]
     Active Substance: APALUTAMIDE
     Indication: Hormone-dependent prostate cancer
     Dosage: STRENGTH:240 UNITS UNSPECIFIED.
     Route: 048
     Dates: end: 20241025
  2. ORGOVYX [Suspect]
     Active Substance: RELUGOLIX

REACTIONS (1)
  - Pulmonary fibrosis [Recovering/Resolving]
